FAERS Safety Report 9719657 (Version 2)
Quarter: 2014Q2

REPORT INFORMATION
  Report Type: Report from Study
  Country: US (occurrence: US)
  Receive Date: 20131128
  Receipt Date: 20140508
  Transmission Date: 20141212
  Serious: Yes (Other)
  Sender: FDA-Public Use
  Company Number: US-ROCHE-1310170

PATIENT
  Sex: Male

DRUGS (2)
  1. LUCENTIS [Suspect]
     Indication: AGE-RELATED MACULAR DEGENERATION
     Route: 050
     Dates: start: 201307
  2. LUCENTIS [Suspect]
     Indication: RETINAL OEDEMA

REACTIONS (2)
  - Cerebrovascular accident [Unknown]
  - Eye pain [Unknown]
